FAERS Safety Report 16483210 (Version 3)
Quarter: 2020Q1

REPORT INFORMATION
  Report Type: Spontaneous
  Country: US (occurrence: US)
  Receive Date: 20190627
  Receipt Date: 20200113
  Transmission Date: 20200409
  Serious: Yes (Hospitalization)
  Sender: FDA-Public Use
  Company Number: US-PFIZER INC-2019274870

PATIENT
  Age: 75 Year
  Sex: Female
  Weight: 133.79 kg

DRUGS (2)
  1. BOSULIF [Suspect]
     Active Substance: BOSUTINIB MONOHYDRATE
     Indication: CHRONIC MYELOID LEUKAEMIA
     Dosage: 100 MG, 2X/DAY
     Route: 048
     Dates: start: 20190208, end: 201911
  2. BOSULIF [Suspect]
     Active Substance: BOSUTINIB MONOHYDRATE
     Dosage: 200 MG, DAILY
     Route: 048
     Dates: start: 20190208

REACTIONS (6)
  - Erythema [Unknown]
  - Rash [Unknown]
  - Pruritus [Unknown]
  - Cellulitis [Not Recovered/Not Resolved]
  - Anaemia [Not Recovered/Not Resolved]
  - Lower limb fracture [Unknown]
